FAERS Safety Report 6277016-6 (Version None)
Quarter: 2009Q3

REPORT INFORMATION
  Report Type: 
  Country: None (occurrence: None)
  Receive Date: 20090722
  Receipt Date: 20090716
  Transmission Date: 20100115
  Serious: Yes (Hospitalization)
  Sender: FDA-Public Use
  Company Number: JP-EISAI INC.-E2090-00798-SPO-JP

PATIENT
  Age: 38 Year
  Sex: Male

DRUGS (3)
  1. EXCEGRAN [Suspect]
     Indication: EPILEPSY
     Route: 048
     Dates: start: 20030101, end: 20090101
  2. PREDNISOLONE [Concomitant]
  3. MAGNESIUM OXIDE [Concomitant]

REACTIONS (3)
  - HYPOHIDROSIS [None]
  - PYREXIA [None]
  - RHABDOMYOLYSIS [None]
